FAERS Safety Report 13247438 (Version 4)
Quarter: 2017Q4

REPORT INFORMATION
  Report Type: Spontaneous
  Country: IL (occurrence: ES)
  Receive Date: 20170217
  Receipt Date: 20171020
  Transmission Date: 20180320
  Serious: Yes (Death)
  Sender: FDA-Public Use
  Company Number: IL-ALLERGAN-1705844US

PATIENT
  Age: 63 Year
  Sex: Male

DRUGS (7)
  1. CEFTAZIDIME;AVIBACTAM UNK [Suspect]
     Active Substance: AVIBACTAM SODIUM\CEFTAZIDIME
     Indication: PATHOGEN RESISTANCE
     Dosage: UNK
     Route: 042
     Dates: start: 20151016
  2. DAPTOMYCIN. [Concomitant]
     Active Substance: DAPTOMYCIN
     Indication: PATHOGEN RESISTANCE
  3. VANCOMYCIN [Concomitant]
     Active Substance: VANCOMYCIN
     Indication: PATHOGEN RESISTANCE
  4. COLISTIN [Concomitant]
     Active Substance: COLISTIN
     Indication: PATHOGEN RESISTANCE
  5. CLINDAMYCIN. [Concomitant]
     Active Substance: CLINDAMYCIN
     Indication: PATHOGEN RESISTANCE
  6. MEROPENEM. [Concomitant]
     Active Substance: MEROPENEM
     Indication: PATHOGEN RESISTANCE
  7. AMIKACIN [Concomitant]
     Active Substance: AMIKACIN
     Indication: PATHOGEN RESISTANCE

REACTIONS (2)
  - Treatment failure [Fatal]
  - Drug ineffective [Unknown]
